FAERS Safety Report 8999042 (Version 1)
Quarter: 2013Q1

REPORT INFORMATION
  Report Type: Report from Study
  Country: IE (occurrence: IE)
  Receive Date: 20130103
  Receipt Date: 20130103
  Transmission Date: 20140127
  Serious: Yes (Hospitalization)
  Sender: FDA-Public Use
  Company Number: IE-BRISTOL-MYERS SQUIBB COMPANY-14762025

PATIENT
  Age: 74 Year
  Sex: Male

DRUGS (12)
  1. DASATINIB [Suspect]
     Indication: PROSTATE CANCER
     Dosage: INTERRUPTED ON 30AUG09
     Route: 048
     Dates: start: 20090403
  2. DOCETAXEL [Suspect]
     Indication: PROSTATE CANCER
     Dosage: INITIATED 03-APR-2009
     Route: 042
     Dates: start: 20090403, end: 20090821
  3. PREDNISONE [Suspect]
     Indication: PROSTATE CANCER
     Route: 048
     Dates: start: 20090403
  4. DEXAMETHASONE [Suspect]
     Indication: PREMEDICATION
     Route: 048
  5. ASPIRIN [Concomitant]
  6. OXYCONTIN [Concomitant]
  7. ZOTON [Concomitant]
  8. GALFER [Concomitant]
     Dosage: 1 DF = 305 UNITS NOT SPECIFIED
  9. CYCLIZINE [Concomitant]
     Dosage: 1 DF = 50 UNITS NOT SPECIFIED
  10. LIPITOR [Concomitant]
     Dosage: 1 DF = 10 UNITS NOT SPECIFIED
  11. TEMAZEPAM [Concomitant]
     Dosage: 1 DF = 10 UNITS NOT SPECIFIED
  12. OXYNORM [Concomitant]
     Dosage: 1 DF = 5 UNITS NOT SPECIFIED

REACTIONS (3)
  - Fatigue [Recovered/Resolved]
  - Hyponatraemia [Recovered/Resolved]
  - Dehydration [Recovered/Resolved]
